FAERS Safety Report 15729355 (Version 1)
Quarter: 2018Q4

REPORT INFORMATION
  Report Type: Spontaneous
  Country: TT (occurrence: TT)
  Receive Date: 20181217
  Receipt Date: 20181217
  Transmission Date: 20190205
  Serious: Yes (Other)
  Sender: FDA-Public Use
  Company Number: TT-ELI_LILLY_AND_COMPANY-TT201810003983

PATIENT
  Age: 63 Year
  Sex: Female

DRUGS (3)
  1. IRINOTECAN [Concomitant]
     Active Substance: IRINOTECAN
     Indication: COLORECTAL CANCER
     Dosage: 480 MG, UNKNOWN
  2. ERBITUX [Suspect]
     Active Substance: CETUXIMAB
     Dosage: 400 MG, WEEKLY (1/W)
     Route: 042
     Dates: start: 20180919
  3. ERBITUX [Suspect]
     Active Substance: CETUXIMAB
     Indication: COLORECTAL CANCER
     Dosage: 640 MG, UNKNOWN
     Route: 042
     Dates: start: 20180912, end: 20180912

REACTIONS (12)
  - Full blood count decreased [Unknown]
  - Lung infection [Recovering/Resolving]
  - Dry mouth [Unknown]
  - Decreased appetite [Recovering/Resolving]
  - Dehydration [Unknown]
  - Musculoskeletal pain [Unknown]
  - Constipation [Recovered/Resolved]
  - Alopecia [Unknown]
  - Fatigue [Not Recovered/Not Resolved]
  - Back pain [Recovered/Resolved]
  - Oropharyngeal pain [Unknown]
  - Rash [Recovering/Resolving]

NARRATIVE: CASE EVENT DATE: 2018
